FAERS Safety Report 12120165 (Version 2)
Quarter: 2016Q2

REPORT INFORMATION
  Report Type: Spontaneous
  Country: US (occurrence: US)
  Receive Date: 20160226
  Receipt Date: 20160404
  Transmission Date: 20160815
  Serious: No
  Sender: FDA-Public Use
  Company Number: US-PFIZER INC-2016121787

PATIENT
  Age: 60 Year
  Sex: Female

DRUGS (6)
  1. XELODA [Concomitant]
     Active Substance: CAPECITABINE
     Indication: GASTRIC CANCER
     Dosage: UNK
     Dates: start: 20140619, end: 20140710
  2. FLUOROURACIL. [Concomitant]
     Active Substance: FLUOROURACIL
     Indication: GASTRIC CANCER
     Dosage: UNK
     Dates: start: 20140923, end: 20150428
  3. FOLFOX-4 [Concomitant]
     Active Substance: FLUOROURACIL\LEUCOVORIN CALCIUM\OXALIPLATIN
     Dosage: 9 CYCLES OF DOSE-REDUCED
  4. GABAPENTIN. [Suspect]
     Active Substance: GABAPENTIN
     Indication: PARAESTHESIA
     Dosage: 300
  5. EPIRUBICIN [Concomitant]
     Active Substance: EPIRUBICIN
     Indication: GASTRIC CANCER
     Dosage: UNK
     Dates: start: 20140619, end: 20140710
  6. GABAPENTIN. [Suspect]
     Active Substance: GABAPENTIN
     Dosage: 300 MG EVERY 8 HOURS

REACTIONS (1)
  - Drug ineffective for unapproved indication [Recovered/Resolved]
